APPROVED DRUG PRODUCT: GILOTRIF
Active Ingredient: AFATINIB DIMALEATE
Strength: EQ 40MG BASE
Dosage Form/Route: TABLET;ORAL
Application: N201292 | Product #003
Applicant: BOEHRINGER INGELHEIM
Approved: Jul 12, 2013 | RLD: Yes | RS: Yes | Type: RX

PATENTS:
Patent 9539258 | Expires: Nov 9, 2026
Patent 8426586 | Expires: Oct 10, 2029
Patent 8545884 | Expires: Dec 19, 2029
Patent RE43431 | Expires: Jan 13, 2026
Patent 10004743 | Expires: Jul 5, 2030
Patent 8545884*PED | Expires: Jun 19, 2030
Patent RE43431*PED | Expires: Jul 13, 2026
Patent 8426586*PED | Expires: Apr 10, 2030
Patent 10004743*PED | Expires: Jan 5, 2031
Patent 9539258*PED | Expires: May 9, 2027